FAERS Safety Report 11238296 (Version 4)
Quarter: 2015Q3

REPORT INFORMATION
  Report Type: Report from Study
  Country: US (occurrence: US)
  Receive Date: 20150704
  Receipt Date: 20150923
  Transmission Date: 20151125
  Serious: No
  Sender: FDA-Public Use
  Company Number: PHEH2015US012881

PATIENT
  Age: 63 Year
  Sex: Male
  Weight: 90.27 kg

DRUGS (3)
  1. TOBI PODHALER [Suspect]
     Active Substance: TOBRAMYCIN
     Indication: CYSTIC FIBROSIS
     Dosage: 112 MG (4 CAPSULES), BID (28 DAYS QOM)
     Route: 055
     Dates: start: 20150619
  2. PULMOZYME [Concomitant]
     Active Substance: DORNASE ALFA
     Indication: PRODUCT USED FOR UNKNOWN INDICATION
     Route: 065
  3. ZENPEP [Concomitant]
     Active Substance: PANCRELIPASE\PANCRELIPASE AMYLASE\PANCRELIPASE LIPASE\PANCRELIPASE PROTEASE
     Indication: PRODUCT USED FOR UNKNOWN INDICATION
     Route: 065

REACTIONS (3)
  - Dysgeusia [Not Recovered/Not Resolved]
  - Incorrect drug administration duration [Unknown]
  - Bronchospasm [Unknown]

NARRATIVE: CASE EVENT DATE: 20150619
